FAERS Safety Report 9433903 (Version 2)
Quarter: 2013Q3

REPORT INFORMATION
  Report Type: Spontaneous
  Country: FR (occurrence: FR)
  Receive Date: 20130801
  Receipt Date: 20130807
  Transmission Date: 20140515
  Serious: Yes (Hospitalization)
  Sender: FDA-Public Use
  Company Number: PHHY2013FR079948

PATIENT
  Age: 41 Year
  Sex: Female

DRUGS (3)
  1. EPIRUBICIN [Suspect]
     Indication: INVASIVE DUCTAL BREAST CARCINOMA
     Dosage: 190 MG, 1 TIME PER 1 CYCLE
     Route: 042
     Dates: start: 20130705
  2. FLUOROURACIL [Suspect]
     Indication: INVASIVE DUCTAL BREAST CARCINOMA
     Dosage: 950 UG,  1TIMES PER CYCLE
     Route: 042
     Dates: start: 20130705, end: 20130705
  3. ENDOXAN [Suspect]
     Indication: INVASIVE DUCTAL BREAST CARCINOMA
     Dosage: 960 MG, 1 TIME PER 1 CYCLE
     Dates: start: 20130705, end: 20130705

REACTIONS (1)
  - Hepatitis [Not Recovered/Not Resolved]
